FAERS Safety Report 21970400 (Version 1)
Quarter: 2023Q1

REPORT INFORMATION
  Report Type: Spontaneous
  Country: CA (occurrence: CA)
  Receive Date: 20230209
  Receipt Date: 20230209
  Transmission Date: 20230417
  Serious: Yes (Other)
  Sender: FDA-Public Use
  Company Number: CA-SA-2019SA178064

PATIENT
  Age: 37 Year
  Sex: Female

DRUGS (11)
  1. PLAQUENIL [Suspect]
     Active Substance: HYDROXYCHLOROQUINE SULFATE
     Indication: Rheumatoid arthritis
  2. METHOTREXATE [Suspect]
     Active Substance: METHOTREXATE
     Indication: Rheumatoid arthritis
  3. MYCOPHENOLATE MOFETIL [Suspect]
     Active Substance: MYCOPHENOLATE MOFETIL
     Indication: Rheumatoid arthritis
  4. LEFLUNOMIDE [Suspect]
     Active Substance: LEFLUNOMIDE
     Indication: Rheumatoid arthritis
     Dosage: 20 MG
     Route: 048
  5. ENBREL [Suspect]
     Active Substance: ETANERCEPT
     Indication: Rheumatoid arthritis
  6. CYCLOSPORINE [Suspect]
     Active Substance: CYCLOSPORINE
     Indication: Rheumatoid arthritis
  7. IMURAN [Suspect]
     Active Substance: AZATHIOPRINE
     Indication: Rheumatoid arthritis
  8. ACTEMRA [Suspect]
     Active Substance: TOCILIZUMAB
     Dosage: UNK
  9. ORENCIA [Suspect]
     Active Substance: ABATACEPT
     Indication: Rheumatoid arthritis
  10. RITUXAN [Suspect]
     Active Substance: RITUXIMAB
     Indication: Rheumatoid arthritis
     Route: 042
  11. XELJANZ [Concomitant]
     Active Substance: TOFACITINIB CITRATE
     Indication: Rheumatoid arthritis
     Dosage: 79 DAY

REACTIONS (21)
  - Arthralgia [Unknown]
  - Arthritis [Unknown]
  - C-reactive protein abnormal [Unknown]
  - Chest pain [Unknown]
  - Dyspnoea [Unknown]
  - Elbow deformity [Unknown]
  - Fatigue [Unknown]
  - Jaw fracture [Unknown]
  - Joint swelling [Unknown]
  - Musculoskeletal pain [Unknown]
  - Neck pain [Unknown]
  - Overlap syndrome [Unknown]
  - Pain in extremity [Unknown]
  - Pain in jaw [Unknown]
  - Red blood cell sedimentation rate abnormal [Unknown]
  - SLE arthritis [Unknown]
  - Toxicity to various agents [Unknown]
  - Weight decreased [Unknown]
  - Drug intolerance [Recovering/Resolving]
  - Drug ineffective [Unknown]
  - Rheumatoid arthritis [Recovering/Resolving]
